FAERS Safety Report 5876973-7 (Version None)
Quarter: 2008Q3

REPORT INFORMATION
  Report Type: 
  Country: None (occurrence: None)
  Receive Date: 20080910
  Receipt Date: 20080829
  Transmission Date: 20090109
  Serious: Yes (Hospitalization)
  Sender: FDA-Public Use
  Company Number: PHBS2008CH05513

PATIENT
  Age: 84 Year
  Sex: Female

DRUGS (2)
  1. CYCLOSPORINE [Suspect]
  2. ESCITALOPRAM [Suspect]

REACTIONS (3)
  - DELIRIUM [None]
  - HYPERTHERMIA [None]
  - SEROTONIN SYNDROME [None]
